FAERS Safety Report 12411103 (Version 1)
Quarter: 2016Q2

REPORT INFORMATION
  Report Type: Spontaneous
  Country: FR (occurrence: FR)
  Receive Date: 20160527
  Receipt Date: 20160527
  Transmission Date: 20160815
  Serious: Yes (Other)
  Sender: FDA-Public Use
  Company Number: FR-SA-2016SA097685

PATIENT
  Age: 88 Year
  Sex: Female

DRUGS (14)
  1. ADENURIC [Concomitant]
     Active Substance: FEBUXOSTAT
  2. AMOXICILLIN. [Concomitant]
     Active Substance: AMOXICILLIN
     Route: 042
     Dates: start: 20160407, end: 20160410
  3. BISOPROLOL [Concomitant]
     Active Substance: BISOPROLOL
  4. BROMAZEPAM [Concomitant]
     Active Substance: BROMAZEPAM
  5. PERINDOPRIL/INDAPAMIDE [Suspect]
     Active Substance: INDAPAMIDE\PERINDOPRIL
     Indication: HYPERTENSION
     Route: 048
     Dates: end: 20160415
  6. LEVOTHYROX [Concomitant]
     Active Substance: LEVOTHYROXINE
  7. LASILIX [Concomitant]
     Active Substance: FUROSEMIDE
  8. KARDEGIC [Concomitant]
     Active Substance: ASPIRIN LYSINE
  9. RIFADINE [Suspect]
     Active Substance: RIFAMPIN
     Indication: ENDOCARDITIS
     Route: 048
     Dates: start: 20160413, end: 20160415
  10. CLAMOXYL [Suspect]
     Active Substance: AMOXICILLIN\CLAVULANIC ACID
     Indication: ENDOCARDITIS
     Route: 048
     Dates: start: 20160410, end: 20160415
  11. SIMVASTATIN. [Concomitant]
     Active Substance: SIMVASTATIN
  12. FOSAVANCE [Concomitant]
     Active Substance: ALENDRONATE SODIUM\CHOLECALCIFEROL
  13. RIMACTAN [Concomitant]
     Active Substance: RIFAMPIN
     Route: 048
     Dates: start: 20160407
  14. CORTANCYL [Concomitant]
     Active Substance: PREDNISONE

REACTIONS (3)
  - Dysarthria [Recovered/Resolved]
  - Angioedema [Recovered/Resolved]
  - Acute kidney injury [Recovered/Resolved]

NARRATIVE: CASE EVENT DATE: 20160415
